FAERS Safety Report 4556546-9 (Version None)
Quarter: 2005Q1

REPORT INFORMATION
  Report Type: 
  Country: None (occurrence: None)
  Receive Date: 20050114
  Receipt Date: 20050105
  Transmission Date: 20050727
  Serious: Yes (Life-Threatening, Hospitalization)
  Sender: FDA-Public Use
  Company Number: GXKR2005GB00449

PATIENT
  Age: 72 Year
  Sex: Female

DRUGS (15)
  1. ERYTHROMYCIN [Suspect]
     Indication: INFECTION
     Dosage: 500 MG, QID, ORAL
     Route: 048
     Dates: start: 20041122, end: 20041123
  2. PARACETAMOL+CODEINE (NGX)(ACETAMINOPHEN (PARACETAMOL), CODEINE PHOSPHA [Suspect]
     Indication: PAIN
     Dosage: 8/500 1-2 QID, ORAL
     Route: 048
     Dates: start: 20041121
  3. BECLOMETHASONE DIPROPIONATE [Concomitant]
  4. FRAGMIN [Concomitant]
  5. CIPROFLOXACIN [Concomitant]
  6. LANSOPRAZOLE [Concomitant]
  7. CALCICHEW D3 (CALCIUM CARBONATE, COLECALCIFEROL) [Concomitant]
  8. ASPIRIN [Concomitant]
  9. ALFACALCIDOL (ALFACALCIDOL) [Concomitant]
  10. MESALAMINE [Concomitant]
  11. PREDNISOLONE [Concomitant]
  12. FUROSEMIDE [Concomitant]
  13. PERINDOPRIL (PERINDOPRIL) [Concomitant]
  14. SALBUTAMOL (SALBUTAMOL) [Concomitant]
  15. IPRATROPIUM BROMIDE [Concomitant]

REACTIONS (3)
  - ALANINE AMINOTRANSFERASE INCREASED [None]
  - BLOOD ALKALINE PHOSPHATASE INCREASED [None]
  - GAMMA-GLUTAMYLTRANSFERASE INCREASED [None]
